FAERS Safety Report 20180110 (Version 1)
Quarter: 2021Q4

REPORT INFORMATION
  Report Type: Spontaneous
  Country: US (occurrence: None)
  Receive Date: 20211213
  Receipt Date: 20211213
  Transmission Date: 20220303
  Serious: No
  Sender: FDA-Public Use
  Company Number: None

PATIENT
  Age: 44 Year
  Sex: Male
  Weight: 133 kg

DRUGS (1)
  1. REGEN-COV [Suspect]
     Active Substance: CASIRIVIMAB\IMDEVIMAB
     Indication: COVID-19
     Dosage: OTHER FREQUENCY : ONE TIME;?
     Route: 042
     Dates: start: 20211213, end: 20211213

REACTIONS (6)
  - Flushing [None]
  - Muscle tightness [None]
  - Chest pain [None]
  - Pelvic pain [None]
  - Infusion related reaction [None]
  - Discomfort [None]

NARRATIVE: CASE EVENT DATE: 20211213
